FAERS Safety Report 9294061 (Version 1)
Quarter: 2013Q1

REPORT INFORMATION
  Report Type: Spontaneous
  Country: US (occurrence: None)
  Receive Date: 20121226
  Receipt Date: 20121226
  Transmission Date: 20140127
  Serious: Yes (Hospitalization)
  Sender: FDA-Public Use
  Company Number: 356183

PATIENT
  Age: 63 Year
  Sex: Female
  Weight: 64.86 kg

DRUGS (4)
  1. LEVEMIR FLEXPEN [Suspect]
     Indication: TYPE 2 DIABETES MELLITUS
     Dosage: 50 UNITS, TWICE A DAY, SUBCUTANEOUS
     Route: 058
     Dates: start: 201111
  2. NOVOLOG FLEXPEN (INSULIN SOLUTION FOR INJECTION, 100 U/ML [Concomitant]
  3. TYLENOL (PARACETAMOL) [Concomitant]
  4. GABAPENTIN (GABAPENTIN) [Concomitant]

REACTIONS (4)
  - Blood glucose decreased [None]
  - Decreased appetite [None]
  - Weight decreased [None]
  - Pruritus [None]
